FAERS Safety Report 9012739 (Version 1)
Quarter: 2013Q1

REPORT INFORMATION
  Report Type: Spontaneous
  Country: US (occurrence: US)
  Receive Date: 20130114
  Receipt Date: 20130114
  Transmission Date: 20140127
  Serious: Yes (Death)
  Sender: FDA-Public Use
  Company Number: US-ROXANE LABORATORIES, INC.-2013-RO-00044RO

PATIENT
  Age: 2 Year
  Sex: Male

DRUGS (3)
  1. DIAZEPAM [Suspect]
  2. KEPPRA [Suspect]
  3. CARBAMAZEPINE [Suspect]

REACTIONS (2)
  - Dehydration [Fatal]
  - Constipation [Fatal]
